FAERS Safety Report 15801669 (Version 1)
Quarter: 2019Q1

REPORT INFORMATION
  Report Type: Spontaneous
  Country: US (occurrence: US)
  Receive Date: 20190103
  Receipt Date: 20190103
  Transmission Date: 20190417
  Serious: No
  Sender: FDA-Public Use
  Company Number: None

PATIENT
  Sex: Female

DRUGS (1)
  1. TACROLIMUS CAP 1MG [Suspect]
     Active Substance: TACROLIMUS
     Dates: start: 201802

REACTIONS (5)
  - Dehydration [None]
  - Diarrhoea [None]
  - Gastroenteritis viral [None]
  - Urinary tract infection [None]
  - Pyrexia [None]
